FAERS Safety Report 23064497 (Version 1)
Quarter: 2023Q4

REPORT INFORMATION
  Report Type: Report from Study
  Country: US (occurrence: US)
  Receive Date: 20231013
  Receipt Date: 20231013
  Transmission Date: 20240110
  Serious: Yes (Hospitalization, Other)
  Sender: FDA-Public Use
  Company Number: US-ABBVIE-4752792

PATIENT
  Sex: Female

DRUGS (3)
  1. RINVOQ [Suspect]
     Active Substance: UPADACITINIB
     Indication: Eczema
     Dosage: STRENGTH: 15 MG??LAST ADMIN DATE 2023
     Route: 048
     Dates: start: 202302, end: 2023
  2. RINVOQ [Suspect]
     Active Substance: UPADACITINIB
     Indication: Eczema
     Dosage: STRENGTH: 15 MG?FIRST ADMIN DATE 2023?LAST ADMIN DATE 2023
     Route: 048
     Dates: start: 2023
  3. RINVOQ [Suspect]
     Active Substance: UPADACITINIB
     Indication: Eczema
     Dosage: STRENGTH: 15 MG?FIRST ADMIN DATE 2023
     Route: 048
     Dates: end: 20230919

REACTIONS (26)
  - Calcinosis [Unknown]
  - Oropharyngeal pain [Unknown]
  - Influenza [Unknown]
  - Chest discomfort [Not Recovered/Not Resolved]
  - Upper respiratory tract infection [Not Recovered/Not Resolved]
  - Ear infection [Unknown]
  - Abdominal pain upper [Unknown]
  - Dizziness [Not Recovered/Not Resolved]
  - Arthralgia [Unknown]
  - Nasal discharge discolouration [Not Recovered/Not Resolved]
  - Ear pain [Unknown]
  - Rash [Unknown]
  - Stress [Unknown]
  - Neck pain [Unknown]
  - Anxiety [Unknown]
  - Productive cough [Unknown]
  - Confusional state [Unknown]
  - Spider vein [Not Recovered/Not Resolved]
  - Hypoaesthesia [Unknown]
  - Fatigue [Unknown]
  - Bone pain [Unknown]
  - Pain in extremity [Unknown]
  - Back pain [Unknown]
  - Eczema [Unknown]
  - Head discomfort [Unknown]
  - Memory impairment [Unknown]

NARRATIVE: CASE EVENT DATE: 20230101
